FAERS Safety Report 25662497 (Version 1)
Quarter: 2025Q3

REPORT INFORMATION
  Report Type: Spontaneous
  Country: US (occurrence: US)
  Receive Date: 20250810
  Receipt Date: 20250810
  Transmission Date: 20251020
  Serious: No
  Sender: ABBVIE
  Company Number: US-ABBVIE-6400640

PATIENT
  Sex: Female

DRUGS (1)
  1. RESTASIS [Suspect]
     Active Substance: CYCLOSPORINE
     Indication: Dry eye
     Route: 047
     Dates: start: 20250801

REACTIONS (3)
  - Poor quality product administered [Unknown]
  - Product storage error [Unknown]
  - Illness [Unknown]

NARRATIVE: CASE EVENT DATE: 20250101
